FAERS Safety Report 7911145-3 (Version None)
Quarter: 2011Q4

REPORT INFORMATION
  Report Type: 
  Country: None (occurrence: None)
  Receive Date: 20111109
  Receipt Date: 20111028
  Transmission Date: 20120403
  Serious: Yes (Other)
  Sender: FDA-Public Use
  Company Number: CIP11002423

PATIENT
  Age: 69 Year
  Sex: Female

DRUGS (1)
  1. ACTONEL WITH CALCIUM (COPACKAGED) [Suspect]
     Dosage: 35 MG, ORAL
     Route: 048
     Dates: start: 20110607, end: 20110807

REACTIONS (5)
  - PARATHYROID TUMOUR BENIGN [None]
  - SYNCOPE [None]
  - CARDIAC ARREST [None]
  - CONDUCTION DISORDER [None]
  - BLOOD CALCIUM INCREASED [None]
